FAERS Safety Report 5196861-1 (Version None)
Quarter: 2006Q4

REPORT INFORMATION
  Report Type: 
  Country: None (occurrence: None)
  Receive Date: 20061227
  Receipt Date: 20061214
  Transmission Date: 20070319
  Serious: Yes (Other)
  Sender: FDA-Public Use
  Company Number: 2006154331

PATIENT
  Age: 42 Year
  Sex: Female
  Weight: 85.7298 kg

DRUGS (2)
  1. CHANTIX [Suspect]
     Indication: SMOKING CESSATION THERAPY
     Dosage: 0.5 MG (0.5 MG, 1 IN 1 D)
     Dates: start: 20061001
  2. AMITRIPTYLINE HCL [Concomitant]

REACTIONS (7)
  - DYSGEUSIA [None]
  - FEAR [None]
  - GINGIVAL DISCOLOURATION [None]
  - GINGIVAL DISORDER [None]
  - HYPOAESTHESIA [None]
  - ORAL MUCOSAL DISCOLOURATION [None]
  - PARAESTHESIA [None]
